FAERS Safety Report 6759129-5 (Version None)
Quarter: 2010Q2

REPORT INFORMATION
  Report Type: 
  Country: None (occurrence: None)
  Receive Date: 20100607
  Receipt Date: 20100524
  Transmission Date: 20101027
  Serious: Yes (Hospitalization)
  Sender: FDA-Public Use
  Company Number: US-ROCHE-703110

PATIENT
  Sex: Male

DRUGS (4)
  1. PEGINTERFERON ALFA-2A [Suspect]
     Indication: HEPATITIS C
     Dosage: PRE FILLED SYRINGE; WEEK 14
     Route: 065
     Dates: start: 20100217
  2. RIBAVIRIN [Suspect]
     Indication: HEPATITIS C
     Dosage: WEEK 14
     Route: 065
     Dates: start: 20100217
  3. CITALOPRAM [Concomitant]
  4. GABAPENTIN [Concomitant]

REACTIONS (14)
  - APPENDICITIS PERFORATED [None]
  - ASTHENIA [None]
  - BURNING SENSATION [None]
  - DEPRESSION [None]
  - DIZZINESS [None]
  - DRUG DEPENDENCE [None]
  - EPISTAXIS [None]
  - GANGRENE [None]
  - HAEMORRHOIDS [None]
  - INSOMNIA [None]
  - MENTAL DISORDER [None]
  - NAUSEA [None]
  - VISION BLURRED [None]
  - VOMITING [None]
